FAERS Safety Report 6283390-7 (Version None)
Quarter: 2009Q3

REPORT INFORMATION
  Report Type: 
  Country: None (occurrence: None)
  Receive Date: 20090724
  Receipt Date: 20090106
  Transmission Date: 20100115
  Serious: No
  Sender: FDA-Public Use
  Company Number: US-AMGEN-KDL327505

PATIENT
  Sex: Male

DRUGS (13)
  1. PROCRIT [Suspect]
     Indication: RENAL FAILURE CHRONIC
  2. ALLOPURINOL [Concomitant]
  3. FERROUS SULFATE TAB [Concomitant]
  4. VITAMIN D [Concomitant]
  5. FEXOFENADINE [Concomitant]
  6. ELESTAT [Concomitant]
     Route: 047
  7. OSTEOBIFLEX [Concomitant]
  8. AVANDIA [Concomitant]
  9. LISINOPRIL [Concomitant]
  10. CRESTOR [Concomitant]
  11. ASPIRIN [Concomitant]
  12. UNSPECIFIED ANTIHYPERTENSIVE AGENT [Concomitant]
  13. UNSPECIFIED MEDICATION [Concomitant]

REACTIONS (1)
  - SERUM FERRITIN DECREASED [None]
